FAERS Safety Report 9311034 (Version 1)
Quarter: 2013Q2

REPORT INFORMATION
  Report Type: Spontaneous
  Country: US (occurrence: None)
  Receive Date: 20130523
  Receipt Date: 20130523
  Transmission Date: 20140414
  Serious: No
  Sender: FDA-Public Use
  Company Number: None

PATIENT
  Age: 71 Year
  Sex: Female
  Weight: 68 kg

DRUGS (2)
  1. IPRATROPIUM BROMIDE [Suspect]
     Indication: ASTHMA
     Dosage: 0.5 MG Q4HPRN INHAL
     Route: 055
     Dates: start: 20130420, end: 20130420
  2. ALBUTEROL SULFATE [Suspect]
     Indication: ASTHMA
     Dosage: 3 MG Q4HPRN INHAL
     Route: 055
     Dates: start: 20130420, end: 20130420

REACTIONS (1)
  - Tongue disorder [None]
